FAERS Safety Report 4928895-3 (Version None)
Quarter: 2006Q1

REPORT INFORMATION
  Report Type: 
  Country: None (occurrence: None)
  Receive Date: 20060301
  Receipt Date: 20060228
  Transmission Date: 20060701
  Serious: Yes (Hospitalization)
  Sender: FDA-Public Use
  Company Number: US-GLAXOSMITHKLINE-A0595493A

PATIENT
  Age: 29 Year
  Sex: Male

DRUGS (1)
  1. SOMINEX MAXIMUM STRENGTH CAPLETS [Suspect]
     Indication: INTENTIONAL OVERDOSE
     Dosage: 16CAPL SINGLE DOSE
     Route: 048
     Dates: start: 20060228, end: 20060228

REACTIONS (2)
  - INTENTIONAL OVERDOSE [None]
  - LOSS OF CONSCIOUSNESS [None]
